FAERS Safety Report 7218495-7 (Version None)
Quarter: 2011Q1

REPORT INFORMATION
  Report Type: 
  Country: None (occurrence: None)
  Receive Date: 20110110
  Receipt Date: 20110110
  Transmission Date: 20110831
  Serious: Yes (Death, Hospitalization, Other)
  Sender: FDA-Public Use
  Company Number: US-ROXANE LABORATORIES, INC.-2011-RO-00043RO

PATIENT
  Age: 55 Year
  Sex: Female

DRUGS (22)
  1. OMEPRAZOLE [Concomitant]
  2. ALBUTEROL SULFATE [Concomitant]
  3. CLOTRIMAZOLE [Concomitant]
  4. CYCLOPHOSPHAMIDE [Suspect]
  5. INSULIN [Concomitant]
  6. POTASSIUM CHLORIDE [Concomitant]
  7. LISINOPRIL [Concomitant]
  8. AZATHIOPRINE [Suspect]
     Dosage: 50 MG
  9. ACETYLSALICYLIC ACID SRT [Concomitant]
  10. CLOPIDOGREL BISULFATE [Concomitant]
  11. GLYCERYL TRINITRATE [Concomitant]
  12. BUMETANIDE [Concomitant]
  13. METOPROLOL [Concomitant]
  14. IPRATROPIUM BROMIDE [Concomitant]
  15. PREDNISONE [Concomitant]
     Indication: WEGENER'S GRANULOMATOSIS
  16. ETANERCEPT [Suspect]
     Indication: WEGENER'S GRANULOMATOSIS
     Dates: start: 20001201, end: 20030916
  17. TRIMETHOPRIM AND SULFAMETHOXAZOLE [Concomitant]
  18. ACETAMINOPHEN [Concomitant]
  19. AZITHROMYCIN [Concomitant]
  20. DICLOFENAC [Concomitant]
  21. AMITRIPTYLINE HCL [Concomitant]
  22. SIMVASTATIN [Concomitant]

REACTIONS (5)
  - CARDIAC ARREST [None]
  - HYPOTENSION [None]
  - ANAEMIA [None]
  - BREAST CANCER [None]
  - SINUS TACHYCARDIA [None]
